FAERS Safety Report 10839288 (Version 1)
Quarter: 2015Q1

REPORT INFORMATION
  Report Type: Report from Study
  Country: US (occurrence: US)
  Receive Date: 20150220
  Receipt Date: 20150220
  Transmission Date: 20150721
  Serious: No
  Sender: FDA-Public Use
  Company Number: US-ABBVIE-14P-163-1241493-00

PATIENT
  Sex: Female
  Weight: 109.87 kg

DRUGS (12)
  1. ASPIRIN. [Concomitant]
     Active Substance: ASPIRIN
     Indication: CARDIAC DISORDER
  2. SYMBICORT [Concomitant]
     Active Substance: BUDESONIDE\FORMOTEROL FUMARATE DIHYDRATE
     Indication: ASTHMA
  3. VITAMIN B12 (CYANOCOBALAMIN AND ANALOGUES) [Concomitant]
     Indication: VITAMIN SUPPLEMENTATION
  4. OMEPRAZOLE. [Concomitant]
     Active Substance: OMEPRAZOLE
     Indication: DYSPEPSIA
  5. HUMIRA [Suspect]
     Active Substance: ADALIMUMAB
     Indication: PSORIASIS
     Dates: start: 2012, end: 201307
  6. CETIRIZINE HCL [Concomitant]
     Active Substance: CETIRIZINE HYDROCHLORIDE
     Indication: HYPERSENSITIVITY
  7. CITALOPRAM [Concomitant]
     Active Substance: CITALOPRAM HYDROBROMIDE
     Indication: DEPRESSION
  8. PROVENTIL [Concomitant]
     Active Substance: ALBUTEROL
     Indication: ASTHMA
  9. HUMIRA [Suspect]
     Active Substance: ADALIMUMAB
     Dates: start: 201401, end: 201401
  10. VITAMIN D3 [Concomitant]
     Active Substance: CHOLECALCIFEROL
     Indication: VITAMIN SUPPLEMENTATION
  11. HUMIRA [Suspect]
     Active Substance: ADALIMUMAB
     Dates: start: 201401
  12. FISH OIL [Concomitant]
     Active Substance: FISH OIL
     Indication: SUPPLEMENTATION THERAPY

REACTIONS (3)
  - Drug ineffective [Not Recovered/Not Resolved]
  - Weight increased [Not Recovered/Not Resolved]
  - Psoriasis [Not Recovered/Not Resolved]

NARRATIVE: CASE EVENT DATE: 2012
